FAERS Safety Report 7296517-5 (Version None)
Quarter: 2011Q1

REPORT INFORMATION
  Report Type: 
  Country: None (occurrence: None)
  Receive Date: 20110216
  Receipt Date: 20110203
  Transmission Date: 20110831
  Serious: Yes (Other)
  Sender: FDA-Public Use
  Company Number: PHHY2011US09569

PATIENT

DRUGS (1)
  1. FEMARA [Suspect]

REACTIONS (2)
  - DEMENTIA ALZHEIMER'S TYPE [None]
  - INSOMNIA [None]
